FAERS Safety Report 11158231 (Version 1)
Quarter: 2015Q2

REPORT INFORMATION
  Report Type: Spontaneous
  Country: US (occurrence: US)
  Receive Date: 20150603
  Receipt Date: 20150603
  Transmission Date: 20150821
  Serious: No
  Sender: FDA-Public Use
  Company Number: US-BIOGENIDEC-2015BI074576

PATIENT
  Age: 26 Year
  Sex: Female

DRUGS (1)
  1. AVONEX [Suspect]
     Active Substance: INTERFERON BETA-1A
     Indication: MULTIPLE SCLEROSIS
     Route: 030
     Dates: start: 20120322, end: 20130714

REACTIONS (4)
  - Injection site reaction [Unknown]
  - Eyelid ptosis [Not Recovered/Not Resolved]
  - Injection site bruising [Unknown]
  - Procedural anxiety [Unknown]

NARRATIVE: CASE EVENT DATE: 20120322
